FAERS Safety Report 6396283-1 (Version None)
Quarter: 2009Q4

REPORT INFORMATION
  Report Type: 
  Country: None (occurrence: None)
  Receive Date: 20091012
  Receipt Date: 20091005
  Transmission Date: 20100525
  Serious: Yes (Hospitalization)
  Sender: FDA-Public Use
  Company Number: US-BIOGENIDEC-2009BI030090

PATIENT
  Age: 47 Year
  Sex: Female

DRUGS (3)
  1. AVONEX [Suspect]
     Indication: MULTIPLE SCLEROSIS
     Route: 030
     Dates: start: 20051216
  2. AVONEX [Suspect]
     Route: 030
     Dates: start: 20090201
  3. AVONEX [Suspect]
     Route: 030

REACTIONS (4)
  - BACK PAIN [None]
  - DYSURIA [None]
  - FLUID RETENTION [None]
  - NEPHROLITHIASIS [None]
